FAERS Safety Report 11333969 (Version 1)
Quarter: 2015Q3

REPORT INFORMATION
  Report Type: Spontaneous
  Country: US (occurrence: US)
  Receive Date: 20150803
  Receipt Date: 20150803
  Transmission Date: 20151125
  Serious: No
  Sender: FDA-Public Use
  Company Number: US-SA-2014SA089203

PATIENT
  Age: 72 Year
  Sex: Female

DRUGS (3)
  1. AMBIEN [Suspect]
     Active Substance: ZOLPIDEM TARTRATE
     Indication: PAIN
     Dosage: UP TO 6 TABLETS DAILY
     Route: 048
     Dates: start: 201307
  2. AMBIEN CR [Concomitant]
     Active Substance: ZOLPIDEM TARTRATE
     Indication: SLEEP DISORDER
     Route: 065
     Dates: start: 201210
  3. AMBIEN [Suspect]
     Active Substance: ZOLPIDEM TARTRATE
     Indication: PAIN
     Dosage: UP TO 5 TABLETS DAILY
     Route: 048
     Dates: start: 201202

REACTIONS (4)
  - Drug tolerance [Unknown]
  - Extra dose administered [Unknown]
  - Off label use [Unknown]
  - Drug prescribing error [Unknown]
